FAERS Safety Report 17795329 (Version 1)
Quarter: 2020Q2

REPORT INFORMATION
  Report Type: Spontaneous
  Country: DK (occurrence: DK)
  Receive Date: 20200515
  Receipt Date: 20200515
  Transmission Date: 20200714
  Serious: Yes (Death, Hospitalization)
  Sender: FDA-Public Use
  Company Number: DK-009507513-2005DNK003367

PATIENT
  Age: 48 Year
  Sex: Male
  Weight: 75 kg

DRUGS (1)
  1. KEYTRUDA [Suspect]
     Active Substance: PEMBROLIZUMAB
     Indication: NON-SMALL CELL LUNG CANCER METASTATIC
     Dosage: 150 MILLIGRAM, STRENGTH UNKNOWN
     Route: 042
     Dates: start: 20200424

REACTIONS (6)
  - Dyspnoea [Unknown]
  - Bundle branch block right [Unknown]
  - Cardiac arrest [Fatal]
  - Atrioventricular block complete [Fatal]
  - Myocarditis [Fatal]
  - Discomfort [Unknown]

NARRATIVE: CASE EVENT DATE: 20200424
